FAERS Safety Report 5565146-3 (Version None)
Quarter: 2007Q4

REPORT INFORMATION
  Report Type: 
  Country: None (occurrence: None)
  Receive Date: 20071218
  Receipt Date: 20071213
  Transmission Date: 20080405
  Serious: Yes (Hospitalization)
  Sender: FDA-Public Use
  Company Number: US-MERCK-0510USA07346

PATIENT
  Age: 69 Year
  Sex: Female

DRUGS (10)
  1. FOSAMAX [Suspect]
     Indication: OSTEOPOROSIS
     Route: 048
     Dates: end: 20051013
  2. FOSAMAX [Suspect]
     Route: 048
     Dates: start: 19950101
  3. SYNTHROID [Concomitant]
     Route: 065
  4. MIACALCIN [Concomitant]
     Route: 065
  5. LEXAPRO [Concomitant]
     Route: 065
  6. TOPAMAX [Concomitant]
     Route: 065
  7. WELLBUTRIN [Concomitant]
     Route: 065
  8. ZYPREXA [Concomitant]
     Route: 065
  9. ACETAMINOPHEN AND HYDROCODONE BITARTRATE [Concomitant]
     Route: 065
  10. MESALAMINE [Concomitant]
     Route: 065

REACTIONS (11)
  - ANXIETY [None]
  - COLITIS [None]
  - DRY MOUTH [None]
  - IMPAIRED HEALING [None]
  - INTRACRANIAL ANEURYSM [None]
  - ONYCHOMYCOSIS [None]
  - OSTEONECROSIS [None]
  - PNEUMONIA [None]
  - RIB FRACTURE [None]
  - TOOTH DISORDER [None]
  - UTERINE DISORDER [None]
